FAERS Safety Report 4949323-8 (Version None)
Quarter: 2006Q1

REPORT INFORMATION
  Report Type: 
  Country: None (occurrence: None)
  Receive Date: 20060315
  Receipt Date: 20060303
  Transmission Date: 20060701
  Serious: Yes (Death, Life-Threatening, Hospitalization)
  Sender: FDA-Public Use
  Company Number: HQWYE459023JAN06

PATIENT
  Age: 43 Year
  Sex: Male
  Weight: 75 kg

DRUGS (4)
  1. ZOSYN [Suspect]
     Indication: PNEUMONIA
     Dosage: 4.5 GRAMS EVERY 6 HOURS, INTRAVENOUS
     Route: 042
     Dates: start: 20051130, end: 20051206
  2. DILANTIN [Concomitant]
  3. VANCOMYCIN [Concomitant]
  4. LEVAQUIN [Concomitant]

REACTIONS (5)
  - ALANINE AMINOTRANSFERASE INCREASED [None]
  - BODY TEMPERATURE INCREASED [None]
  - DIALYSIS [None]
  - EOSINOPHIL COUNT INCREASED [None]
  - RENAL FAILURE ACUTE [None]
